FAERS Safety Report 12400293 (Version 1)
Quarter: 2016Q2

REPORT INFORMATION
  Report Type: Spontaneous
  Country: BR (occurrence: BR)
  Receive Date: 20160525
  Receipt Date: 20160525
  Transmission Date: 20160815
  Serious: Yes (Other)
  Sender: FDA-Public Use
  Company Number: PHHY2016BR070438

PATIENT
  Age: 32 Year
  Sex: Female
  Weight: 62 kg

DRUGS (1)
  1. CIPROFLOXACIN HYDROCHLORIDE SANDOZ [Suspect]
     Active Substance: CIPROFLOXACIN HYDROCHLORIDE
     Indication: GASTROENTERITIS
     Dosage: 500 MG, Q12H
     Route: 065
     Dates: start: 20160514

REACTIONS (11)
  - Cough [Recovering/Resolving]
  - Lip swelling [Recovering/Resolving]
  - Ocular hyperaemia [Recovering/Resolving]
  - Ocular hyperaemia [None]
  - Eye irritation [Recovering/Resolving]
  - Rhinitis [Recovering/Resolving]
  - Hypoaesthesia oral [Recovering/Resolving]
  - Rash [Recovering/Resolving]
  - Laryngospasm [Recovering/Resolving]
  - Pruritus [Recovering/Resolving]
  - Eyelid oedema [Recovering/Resolving]

NARRATIVE: CASE EVENT DATE: 20160514
